FAERS Safety Report 9999279 (Version 1)
Quarter: 2014Q1

REPORT INFORMATION
  Report Type: Not Available
  Country: NO (occurrence: NO)
  Receive Date: 20140312
  Receipt Date: 20140312
  Transmission Date: 20141002
  Serious: Yes (Death, Hospitalization)
  Sender: FDA-Public Use
  Company Number: NO-ASTELLAS-2014EU002088

PATIENT
  Age: 98 Year
  Sex: Female

DRUGS (6)
  1. BETMIGA [Suspect]
     Indication: URINARY INCONTINENCE
     Dosage: 50 MG, UNKNOWN/D
     Route: 048
     Dates: start: 20131126
  2. SELOZOK [Concomitant]
     Indication: HYPERTENSION
     Dosage: 100 MG, UNKNOWN/D
     Route: 048
     Dates: start: 2009
  3. TRIOBE [Concomitant]
     Dosage: UNK
     Route: 048
     Dates: start: 2009
  4. MAGNESIUM LACTATE [Concomitant]
     Indication: MUSCLE SPASMS
     Dosage: UNK
     Route: 048
     Dates: start: 2008
  5. AMLODIPINE [Concomitant]
     Dosage: UNK
     Route: 048
  6. FLUTIDE [Concomitant]
     Indication: ASTHMA
     Dosage: MICROGRAM/DOSE
     Route: 055
     Dates: start: 2011

REACTIONS (2)
  - Cardiac failure [Fatal]
  - Atrial fibrillation [Unknown]
